FAERS Safety Report 16507032 (Version 1)
Quarter: 2019Q3

REPORT INFORMATION
  Report Type: Spontaneous
  Country: US (occurrence: US)
  Receive Date: 20190701
  Receipt Date: 20190701
  Transmission Date: 20191004
  Serious: No
  Sender: FDA-Public Use
  Company Number: US-PERRIGO-19US003286

PATIENT
  Sex: Female
  Weight: 65.76 kg

DRUGS (15)
  1. LANSOPRAZOLE. [Suspect]
     Active Substance: LANSOPRAZOLE
     Dosage: 15 MG, UP TO TID
     Route: 048
  2. ASPIRIN 81 [Concomitant]
     Active Substance: ASPIRIN
     Indication: PROPHYLAXIS
     Dosage: 81 MG
     Route: 065
  3. LORATADINE. [Concomitant]
     Active Substance: LORATADINE
     Indication: SEASONAL ALLERGY
     Dosage: PRN
     Route: 065
  4. VITAMIN D NOS [Concomitant]
     Active Substance: VITAMIN D NOS
     Indication: SUPPLEMENTATION THERAPY
     Dosage: UNK
     Route: 065
  5. SYNTHROID [Concomitant]
     Active Substance: LEVOTHYROXINE SODIUM
     Indication: HYPOTHYROIDISM
     Dosage: UNK
     Route: 065
  6. LANSOPRAZOLE. [Suspect]
     Active Substance: LANSOPRAZOLE
     Indication: GASTROOESOPHAGEAL REFLUX DISEASE
     Dosage: 15 MG, QD
     Route: 048
  7. DOXEPIN [Concomitant]
     Active Substance: DOXEPIN
     Indication: PRURITUS
     Dosage: 50 MG
     Route: 065
  8. VITAMIN B12 [Concomitant]
     Active Substance: CYANOCOBALAMIN
     Indication: SUPPLEMENTATION THERAPY
     Dosage: UNK
     Route: 065
  9. VSL#3 [Concomitant]
     Active Substance: PROBIOTICS NOS
     Indication: GASTROINTESTINAL DISORDER
     Dosage: UNK
     Route: 065
     Dates: start: 201902
  10. PROBIOTICS NOS [Concomitant]
     Active Substance: PROBIOTICS NOS
     Indication: GASTROINTESTINAL DISORDER
     Dosage: UNK
     Route: 065
  11. METFORMIN [Concomitant]
     Active Substance: METFORMIN HYDROCHLORIDE
     Indication: TYPE 2 DIABETES MELLITUS
     Dosage: UNK
     Route: 065
  12. IMODIUM AD [Concomitant]
     Active Substance: LOPERAMIDE HYDROCHLORIDE
     Indication: DIARRHOEA
     Dosage: UNK
     Route: 065
     Dates: start: 2016
  13. METOPROLOL. [Concomitant]
     Active Substance: METOPROLOL
     Indication: HYPERTENSION
     Dosage: UNK
     Route: 065
  14. ATORVASTATIN [Concomitant]
     Active Substance: ATORVASTATIN
     Indication: BLOOD CHOLESTEROL INCREASED
     Dosage: UNK
     Route: 065
  15. GLATIRAMER ACETATE. [Concomitant]
     Active Substance: GLATIRAMER ACETATE
     Indication: MULTIPLE SCLEROSIS
     Dosage: UNK
     Route: 065

REACTIONS (3)
  - Incorrect product administration duration [Unknown]
  - Overdose [Unknown]
  - Inappropriate schedule of product administration [Unknown]
